FAERS Safety Report 7568114-5 (Version None)
Quarter: 2011Q2

REPORT INFORMATION
  Report Type: 
  Country: None (occurrence: None)
  Receive Date: 20110616
  Receipt Date: 20110609
  Transmission Date: 20111010
  Serious: Yes (Hospitalization)
  Sender: FDA-Public Use
  Company Number: WAES 0904USA02889

PATIENT
  Age: 69 Year
  Sex: Male

DRUGS (15)
  1. VELCADE [Suspect]
     Indication: MULTIPLE MYELOMA
     Dosage: 2.29 MG/M[2] IV, 1.0 MG/M[2]/ IV, 0.7 MG/M[2]/
     Route: 042
     Dates: start: 20090515, end: 20090602
  2. VELCADE [Suspect]
     Indication: MULTIPLE MYELOMA
     Dosage: 2.29 MG/M[2] IV, 1.0 MG/M[2]/ IV, 0.7 MG/M[2]/
     Route: 042
     Dates: start: 20090330
  3. VELCADE [Suspect]
     Indication: MULTIPLE MYELOMA
     Dosage: 2.29 MG/M[2] IV, 1.0 MG/M[2]/ IV, 0.7 MG/M[2]/
     Route: 042
     Dates: start: 20090427, end: 20090507
  4. VELCADE [Suspect]
     Indication: MULTIPLE MYELOMA
     Dosage: 2.29 MG/M[2] IV, 1.0 MG/M[2]/ IV, 0.7 MG/M[2]/
     Route: 042
     Dates: start: 20090608
  5. VFEND [Concomitant]
  6. ZOVIRAX [Concomitant]
  7. CAP VORINOSTAT [Suspect]
     Indication: MULTIPLE MYELOMA
     Dosage: 400 MG/DAILY PO
     Route: 048
     Dates: start: 20090608
  8. CAP VORINOSTAT [Suspect]
     Indication: MULTIPLE MYELOMA
     Dosage: 400 MG/DAILY PO
     Route: 048
     Dates: start: 20090330
  9. CAP VORINOSTAT [Suspect]
     Indication: MULTIPLE MYELOMA
     Dosage: 400 MG/DAILY PO
     Route: 048
     Dates: start: 20090427, end: 20090507
  10. CAP VORINOSTAT [Suspect]
     Indication: MULTIPLE MYELOMA
     Dosage: 400 MG/DAILY PO
     Route: 048
     Dates: start: 20090622
  11. CAP VORINOSTAT [Suspect]
     Indication: MULTIPLE MYELOMA
     Dosage: 400 MG/DAILY PO
     Route: 048
     Dates: start: 20090515, end: 20090602
  12. REDOMEX [Concomitant]
  13. ASPIRIN [Concomitant]
  14. AMLODIPINE [Concomitant]
  15. LAXOBERON [Concomitant]

REACTIONS (15)
  - RENAL FAILURE ACUTE [None]
  - ANAEMIA [None]
  - ASTHENIA [None]
  - WOUND [None]
  - INSOMNIA [None]
  - LEUKOPENIA [None]
  - HAEMATOMA [None]
  - HYPERGLYCAEMIA [None]
  - FALL [None]
  - MUSCULAR WEAKNESS [None]
  - OEDEMA PERIPHERAL [None]
  - DIARRHOEA [None]
  - HYPOKALAEMIA [None]
  - HYPOVOLAEMIA [None]
  - THROMBOCYTOPENIA [None]
